FAERS Safety Report 25776573 (Version 1)
Quarter: 2025Q3

REPORT INFORMATION
  Report Type: Spontaneous
  Country: US (occurrence: US)
  Receive Date: 20250909
  Receipt Date: 20250909
  Transmission Date: 20251020
  Serious: No
  Sender: DOMPE FARMACEUTICI
  Company Number: US-FARMAPROD-202503-0769

PATIENT
  Sex: Female

DRUGS (4)
  1. OXERVATE [Suspect]
     Active Substance: CENEGERMIN-BKBJ
     Indication: Neurotrophic keratopathy
     Route: 047
     Dates: start: 20250213
  2. OXERVATE [Suspect]
     Active Substance: CENEGERMIN-BKBJ
  3. LUMIFY [Concomitant]
     Active Substance: BRIMONIDINE TARTRATE
  4. XIIDRA [Concomitant]
     Active Substance: LIFITEGRAST

REACTIONS (4)
  - Asthenopia [Unknown]
  - Ocular hyperaemia [Not Recovered/Not Resolved]
  - Eye pain [Unknown]
  - Visual acuity reduced [Unknown]
